FAERS Safety Report 6231020-2 (Version None)
Quarter: 2009Q2

REPORT INFORMATION
  Report Type: 
  Country: None (occurrence: None)
  Receive Date: 20090616
  Receipt Date: 20090604
  Transmission Date: 20091009
  Serious: Yes (Other)
  Sender: FDA-Public Use
  Company Number: CA-PFIZER INC-2009192487

PATIENT
  Age: 45 Year

DRUGS (9)
  1. LYRICA [Suspect]
     Dosage: 100 MG, 1X/DAY
     Dates: start: 20061101
  2. LYRICA [Suspect]
     Dosage: 150 MG, 1X/DAY
     Dates: start: 20061101
  3. NORTRIPTYLINE [Concomitant]
     Dosage: UNK
  4. ATIVAN [Concomitant]
     Dosage: UNK
  5. ESTRACE [Concomitant]
     Dosage: UNK
  6. FIORINAL [Concomitant]
     Dosage: UNK
  7. SYNTHROID [Concomitant]
     Dosage: UNK
  8. FLEXERIL [Concomitant]
     Dosage: UNK
  9. SEROQUEL [Concomitant]
     Dosage: UNK

REACTIONS (1)
  - TONGUE PARALYSIS [None]
